FAERS Safety Report 8921734 (Version 4)
Quarter: 2013Q1

REPORT INFORMATION
  Report Type: Report from Study
  Country: NL (occurrence: NL)
  Receive Date: 20121121
  Receipt Date: 20130118
  Transmission Date: 20140127
  Serious: Yes (Hospitalization)
  Sender: FDA-Public Use
  Company Number: NL-ABBOTT-12P-114-1008823-00

PATIENT
  Age: 57 Year
  Sex: Male
  Weight: 93 kg

DRUGS (5)
  1. HUMIRA [Suspect]
     Indication: PSORIASIS
     Route: 058
     Dates: start: 20090701, end: 20090710
  2. ACENOCOUMAROL [Concomitant]
     Indication: ARRHYTHMIA
     Dosage: DEPENDING ON BLOOD TEST
     Dates: start: 200508
  3. ROSUVASTATINE [Concomitant]
     Indication: HYPERCHOLESTEROLAEMIA
     Dates: start: 2005
  4. METOPROLOL TARTRATE [Concomitant]
     Indication: ARRHYTHMIA
     Dates: start: 20090607
  5. USTEKINUMAB [Concomitant]
     Indication: PSORIASIS
     Dosage: WEEK 0, WEEK 4, THEN EVERY 3 MONTHS
     Dates: start: 20091207

REACTIONS (1)
  - Cerebrovascular accident [Not Recovered/Not Resolved]
